FAERS Safety Report 5848571-2 (Version None)
Quarter: 2008Q3

REPORT INFORMATION
  Report Type: 
  Country: None (occurrence: None)
  Receive Date: 20080815
  Receipt Date: 20080815
  Transmission Date: 20090109
  Serious: Yes (Other)
  Sender: FDA-Public Use
  Company Number: None

PATIENT
  Sex: Male
  Weight: 88.4514 kg

DRUGS (1)
  1. VARENICLINE 0.5/1MG PFIZER [Suspect]
     Indication: NICOTINE DEPENDENCE
     Dosage: TITRATED TO 1MG BID PO, 2 WEEKS
     Route: 048

REACTIONS (4)
  - ALCOHOLISM [None]
  - ANXIETY [None]
  - CONFUSIONAL STATE [None]
  - MENTAL STATUS CHANGES [None]
